FAERS Safety Report 25487252 (Version 1)
Quarter: 2025Q2

REPORT INFORMATION
  Report Type: Spontaneous
  Country: JO (occurrence: JO)
  Receive Date: 20250627
  Receipt Date: 20250627
  Transmission Date: 20250716
  Serious: Yes (Life-Threatening, Other)
  Sender: RANBAXY
  Company Number: JO-SUN PHARMACEUTICAL INDUSTRIES LTD-2025RR-514076

PATIENT
  Age: 57 Year
  Sex: Female

DRUGS (2)
  1. AMIODARONE [Suspect]
     Active Substance: AMIODARONE
     Indication: Atrial fibrillation
     Route: 065
  2. SIMVASTATIN [Interacting]
     Active Substance: SIMVASTATIN
     Indication: Hyperlipidaemia
     Route: 065

REACTIONS (3)
  - Rhabdomyolysis [Unknown]
  - Drug interaction [Unknown]
  - Hypercalcaemia [Unknown]
